FAERS Safety Report 12509276 (Version 1)
Quarter: 2016Q2

REPORT INFORMATION
  Report Type: Spontaneous
  Country: US (occurrence: US)
  Receive Date: 20160629
  Receipt Date: 20160629
  Transmission Date: 20160815
  Serious: No
  Sender: FDA-Public Use
  Company Number: US-RECKITT BENCKISER HEALTHCARE INT LIMITED-RB-07581-2015

PATIENT
  Sex: Male

DRUGS (2)
  1. MUCINEX DM MAXIMUM STRENGTH [Suspect]
     Active Substance: DEXTROMETHORPHAN HYDROBROMIDE\GUAIFENESIN
     Indication: PRODUCT USED FOR UNKNOWN INDICATION
     Dosage: 1200 MG, SINGLE
     Route: 065
     Dates: start: 20150825
  2. LISINOPRIL. [Concomitant]
     Active Substance: LISINOPRIL
     Indication: PRODUCT USED FOR UNKNOWN INDICATION
     Dosage: UNK
     Route: 065

REACTIONS (10)
  - Oral pain [Recovered/Resolved]
  - Urticaria [Recovered/Resolved]
  - Rash erythematous [Recovered/Resolved]
  - Dry skin [Recovered/Resolved]
  - Adverse drug reaction [Recovered/Resolved]
  - Pruritus generalised [Recovered/Resolved]
  - Glossodynia [Recovered/Resolved]
  - Rash macular [Recovered/Resolved]
  - Dysgeusia [Recovered/Resolved]
  - Generalised oedema [Recovered/Resolved]

NARRATIVE: CASE EVENT DATE: 20150825
